FAERS Safety Report 18761690 (Version 2)
Quarter: 2021Q1

REPORT INFORMATION
  Report Type: Spontaneous
  Country: US (occurrence: US)
  Receive Date: 20210120
  Receipt Date: 20210219
  Transmission Date: 20210419
  Serious: Yes (Hospitalization)
  Sender: FDA-Public Use
  Company Number: US-ELI_LILLY_AND_COMPANY-US202101003786

PATIENT
  Sex: Male

DRUGS (3)
  1. LEVAQUIN [Concomitant]
     Active Substance: LEVOFLOXACIN
     Indication: COVID-19
     Dosage: UNK, UNKNOWN
  2. BAMLANIVIMAB. [Suspect]
     Active Substance: BAMLANIVIMAB
     Indication: COVID-19
     Dosage: UNK UNK, SINGLE
     Route: 065
     Dates: start: 20201201, end: 20201201
  3. VIBRAMYCIN [DOXYCYCLINE HYCLATE] [Concomitant]
     Indication: COVID-19
     Dosage: UNK, UNKNOWN
     Dates: start: 20201202

REACTIONS (3)
  - COVID-19 [Unknown]
  - Skin exfoliation [Unknown]
  - Urticaria [Unknown]
